FAERS Safety Report 23154744 (Version 3)
Quarter: 2024Q1

REPORT INFORMATION
  Report Type: Spontaneous
  Country: US (occurrence: US)
  Receive Date: 20231107
  Receipt Date: 20240105
  Transmission Date: 20240409
  Serious: No
  Sender: FDA-Public Use
  Company Number: US-PFIZER INC-202300352217

PATIENT
  Sex: Female

DRUGS (1)
  1. PREMARIN [Suspect]
     Active Substance: ESTROGENS, CONJUGATED
     Indication: Medical procedure
     Dosage: 1 G, 1X/DAY

REACTIONS (3)
  - Abdominal pain [Unknown]
  - Pollakiuria [Unknown]
  - Off label use [Unknown]
